FAERS Safety Report 20974860 (Version 3)
Quarter: 2022Q4

REPORT INFORMATION
  Report Type: Spontaneous
  Country: BR (occurrence: BR)
  Receive Date: 20220617
  Receipt Date: 20221201
  Transmission Date: 20230113
  Serious: Yes (Other)
  Sender: FDA-Public Use
  Company Number: BR-JNJFOC-20220618932

PATIENT
  Sex: Female
  Weight: 53 kg

DRUGS (3)
  1. INFLIXIMAB [Suspect]
     Active Substance: INFLIXIMAB
     Indication: Crohn^s disease
     Route: 041
     Dates: start: 2009
  2. INFLIXIMAB [Suspect]
     Active Substance: INFLIXIMAB
     Route: 041
  3. INFLIXIMAB [Suspect]
     Active Substance: INFLIXIMAB
     Route: 041
     Dates: start: 2020

REACTIONS (6)
  - Crohn^s disease [Unknown]
  - Intestinal stenosis [Unknown]
  - Drug ineffective [Unknown]
  - Hypersensitivity [Recovering/Resolving]
  - Infusion related reaction [Unknown]
  - Off label use [Unknown]
